FAERS Safety Report 10328133 (Version 2)
Quarter: 2014Q3

REPORT INFORMATION
  Report Type: Spontaneous
  Country: US (occurrence: US)
  Receive Date: 20140721
  Receipt Date: 20140808
  Transmission Date: 20150326
  Serious: No
  Sender: FDA-Public Use
  Company Number: US-ASTRAZENECA-2014SE50182

PATIENT
  Age: 758 Month
  Sex: Female
  Weight: 104.3 kg

DRUGS (5)
  1. INTAL CHROMIUM SODIUM [Concomitant]
     Indication: ASTHMA
     Dosage: COUPLE OF PUFFS 2 TO 4 TIMES DAILY
     Route: 055
  2. LOSARTAN AND HYDROCHLOROTHIAZIDE [Concomitant]
     Active Substance: HYDROCHLOROTHIAZIDE\LOSARTAN POTASSIUM
     Indication: HYPERTENSION
     Dosage: 50 12.5 DAILY
     Route: 048
  3. SINGULAIR [Concomitant]
     Active Substance: MONTELUKAST SODIUM
     Indication: ASTHMA
     Route: 048
  4. ESTRODIAL [Concomitant]
     Indication: OESTROGEN REPLACEMENT THERAPY
     Route: 048
  5. PULMICORT FLEXHALER [Suspect]
     Active Substance: BUDESONIDE
     Indication: ASTHMA
     Dosage: 180 MCG, 1 INHALATION, DAILY
     Route: 055

REACTIONS (5)
  - Hypertension [Unknown]
  - Off label use [Unknown]
  - Circumstance or information capable of leading to device use error [Unknown]
  - Asthma [Recovered/Resolved]
  - Device misuse [Unknown]

NARRATIVE: CASE EVENT DATE: 201407
